FAERS Safety Report 5673679-4 (Version None)
Quarter: 2008Q2

REPORT INFORMATION
  Report Type: 
  Country: None (occurrence: None)
  Receive Date: 20080225
  Receipt Date: 20070411
  Transmission Date: 20081010
  Serious: Yes (Disabling)
  Sender: FDA-Public Use
  Company Number: WAES 0704USA01611

PATIENT
  Age: 58 Year
  Sex: Female
  Weight: 93.8946 kg

DRUGS (1)
  1. ZOCOR [Suspect]
     Dosage: PO
     Route: 048
     Dates: start: 20030101

REACTIONS (7)
  - BLOOD CREATINE PHOSPHOKINASE INCREASED [None]
  - FALL [None]
  - MUSCLE INJURY [None]
  - MUSCLE SPASMS [None]
  - MUSCULAR WEAKNESS [None]
  - MYALGIA [None]
  - PAIN [None]
